FAERS Safety Report 18032747 (Version 7)
Quarter: 2021Q1

REPORT INFORMATION
  Report Type: Spontaneous
  Country: CH (occurrence: CH)
  Receive Date: 20200716
  Receipt Date: 20210330
  Transmission Date: 20210419
  Serious: Yes (Hospitalization, Other)
  Sender: FDA-Public Use
  Company Number: CH-BIOGEN-2020BI00898596

PATIENT
  Age: 29 Year
  Sex: Female
  Weight: 61 kg

DRUGS (6)
  1. PANTOPRAZOL [Concomitant]
     Active Substance: PANTOPRAZOLE SODIUM
     Indication: PROPHYLAXIS
     Dosage: PROPHYLAXIS, AS NEEDED
     Route: 048
     Dates: start: 20180815
  2. TYSABRI [Suspect]
     Active Substance: NATALIZUMAB
     Indication: MULTIPLE SCLEROSIS
     Route: 042
     Dates: start: 20170314
  3. ASPIRIN CARDIO [Concomitant]
     Active Substance: ASPIRIN
     Indication: BENIGN NEOPLASM
     Route: 048
     Dates: start: 201310
  4. VITAMIN D3 [Concomitant]
     Active Substance: CHOLECALCIFEROL
     Indication: VITAMIN D DEFICIENCY
     Route: 048
     Dates: start: 201702
  5. OLFEN DICLOFENAC [Concomitant]
     Indication: PROPHYLAXIS
     Dosage: PROPHYLAXIS, AS NEEDED
     Route: 048
  6. CERAZETTE [Concomitant]
     Indication: CONTRACEPTION
     Route: 048
     Dates: start: 202001

REACTIONS (2)
  - Encephalocele [Recovered/Resolved]
  - Procedural complication [Recovered/Resolved]

NARRATIVE: CASE EVENT DATE: 202007
